FAERS Safety Report 5422833-5 (Version None)
Quarter: 2007Q3

REPORT INFORMATION
  Report Type: 
  Country: None (occurrence: None)
  Receive Date: 20070822
  Receipt Date: 20070808
  Transmission Date: 20080115
  Serious: Yes (Hospitalization, Other)
  Sender: FDA-Public Use
  Company Number: US-SHR-US-2007-023002

PATIENT
  Age: 45 Year
  Sex: Female
  Weight: 99.773 kg

DRUGS (7)
  1. BETASERON [Suspect]
     Indication: RELAPSING-REMITTING MULTIPLE SCLEROSIS
     Dosage: 8 MIU, EVERY 2D
     Route: 058
     Dates: start: 20070301, end: 20070101
  2. BETASERON [Suspect]
     Dosage: 1 MIU, EVERY 2D
     Route: 058
     Dates: start: 20070101, end: 20070101
  3. BETASERON [Suspect]
     Dosage: 4 MIU, EVERY 2D
     Route: 058
     Dates: start: 20070507, end: 20070101
  4. BETASERON [Suspect]
     Route: 058
     Dates: start: 20070406, end: 20070419
  5. BETASERON [Suspect]
     Dosage: 6 MIU, EVERY 2D
     Route: 058
     Dates: start: 20070101
  6. GAVISCON [Concomitant]
  7. NEXIUM [Concomitant]

REACTIONS (16)
  - ASTHENIA [None]
  - BALANCE DISORDER [None]
  - CHEST PAIN [None]
  - DRUG HYPERSENSITIVITY [None]
  - DYSPHAGIA [None]
  - DYSPNOEA [None]
  - EYELID PTOSIS [None]
  - INCREASED UPPER AIRWAY SECRETION [None]
  - INFLUENZA LIKE ILLNESS [None]
  - MULTIPLE SCLEROSIS [None]
  - MUSCULOSKELETAL STIFFNESS [None]
  - MYASTHENIA GRAVIS [None]
  - PAIN OF SKIN [None]
  - PRURITUS GENERALISED [None]
  - RALES [None]
  - RASH [None]
